FAERS Safety Report 9369468 (Version 1)
Quarter: 2013Q2

REPORT INFORMATION
  Report Type: Spontaneous
  Country: US (occurrence: US)
  Receive Date: 20130626
  Receipt Date: 20130626
  Transmission Date: 20140414
  Serious: No
  Sender: FDA-Public Use
  Company Number: US-PFIZER INC-2013187307

PATIENT
  Age: 66 Year
  Sex: Male

DRUGS (14)
  1. SUTENT [Suspect]
     Indication: RENAL CANCER
     Dosage: 50 MG, UNK
     Dates: start: 20130313
  2. ALLOPURINOL [Concomitant]
     Dosage: UNK
  3. CALCIUM WITH VITAMIN D [Concomitant]
     Dosage: UNK
  4. CIPROFLOXACIN HYDROCHLORIDE [Concomitant]
     Dosage: UNK
  5. FISH OIL [Concomitant]
     Dosage: UNK
  6. HYDROCODONE W/ACETAMINOPHEN [Concomitant]
     Dosage: UNK
  7. LOVENOX [Concomitant]
     Dosage: UNK
  8. FLAGYL [Concomitant]
     Dosage: UNK
  9. OMEPRAZOLE [Concomitant]
     Dosage: UNK
  10. TYLENOL [Concomitant]
     Dosage: UNK
  11. VITAMIN C [Concomitant]
     Dosage: UNK
  12. ZETIA [Concomitant]
     Dosage: UNK
  13. ZYRTEC [Concomitant]
     Indication: HYPERSENSITIVITY
     Dosage: UNK
  14. CO-DIOVAN [Concomitant]

REACTIONS (1)
  - Abdominal pain upper [Unknown]
